FAERS Safety Report 7156242-8 (Version None)
Quarter: 2010Q4

REPORT INFORMATION
  Report Type: 
  Country: None (occurrence: None)
  Receive Date: 20101214
  Receipt Date: 20101206
  Transmission Date: 20110411
  Serious: Yes (Other)
  Sender: FDA-Public Use
  Company Number: US-ELI_LILLY_AND_COMPANY-US201012002277

PATIENT
  Sex: Female

DRUGS (2)
  1. GEMZAR [Suspect]
     Dosage: 1570 MG, ON DAYS 1 AND 8 EVERY 3 WEEKS
     Route: 042
     Dates: start: 20100824
  2. CARBOPLATIN [Concomitant]
     Dosage: 498 MG, EVERY 3 WEEKS
     Route: 042
     Dates: start: 20100824

REACTIONS (1)
  - COMPARTMENT SYNDROME [None]
